FAERS Safety Report 13990167 (Version 2)
Quarter: 2017Q3

REPORT INFORMATION
  Report Type: Report from Study
  Country: US (occurrence: US)
  Receive Date: 20170920
  Receipt Date: 20170927
  Transmission Date: 20171128
  Serious: No
  Sender: FDA-Public Use
  Company Number: PHEH2017US030303

PATIENT
  Sex: Female
  Weight: 58.96 kg

DRUGS (1)
  1. GILENYA [Suspect]
     Active Substance: FINGOLIMOD HYDROCHLORIDE
     Indication: MULTIPLE SCLEROSIS
     Dosage: 0.5 MG, QD
     Route: 048
     Dates: start: 2011

REACTIONS (7)
  - Confusional state [Unknown]
  - Fall [Unknown]
  - General physical health deterioration [Unknown]
  - Hypokinesia [Unknown]
  - Central nervous system lesion [Unknown]
  - Dysarthria [Unknown]
  - Gait disturbance [Unknown]
